FAERS Safety Report 18606503 (Version 3)
Quarter: 2021Q1

REPORT INFORMATION
  Report Type: Report from Study
  Country: EG (occurrence: EG)
  Receive Date: 20201211
  Receipt Date: 20210225
  Transmission Date: 20210419
  Serious: Yes (Death, Hospitalization, Other)
  Sender: FDA-Public Use
  Company Number: EG-SEATTLE GENETICS-2020SGN05502

PATIENT
  Sex: Male

DRUGS (1)
  1. BRENTUXIMAB VEDOTIN [Suspect]
     Active Substance: BRENTUXIMAB VEDOTIN
     Indication: HODGKIN^S DISEASE REFRACTORY
     Dosage: UNK
     Route: 042
     Dates: start: 20201118, end: 20210213

REACTIONS (6)
  - Acidosis [Unknown]
  - Oxygen saturation decreased [Unknown]
  - Bronchitis [Unknown]
  - Renal impairment [Unknown]
  - Pulmonary oedema [Unknown]
  - Pulmonary function test decreased [Fatal]
